FAERS Safety Report 10037928 (Version 1)
Quarter: 2014Q1

REPORT INFORMATION
  Report Type: Report from Study
  Country: HU (occurrence: HU)
  Receive Date: 20140326
  Receipt Date: 20140326
  Transmission Date: 20141002
  Serious: Yes (Hospitalization)
  Sender: FDA-Public Use
  Company Number: HU-ASTRAZENECA-2014SE20756

PATIENT
  Age: 66 Year
  Sex: Female

DRUGS (1)
  1. SYMBICORT TH [Suspect]
     Indication: CHRONIC OBSTRUCTIVE PULMONARY DISEASE
     Dosage: 4.5/160 MCG/DOSE; 2 INHALATION/DAY, BID FREQUENCY
     Route: 055
     Dates: start: 20140311, end: 20140314

REACTIONS (3)
  - Asthenia [Unknown]
  - Nausea [Unknown]
  - Palpitations [Unknown]
